FAERS Safety Report 15138547 (Version 4)
Quarter: 2018Q3

REPORT INFORMATION
  Report Type: Spontaneous
  Country: JP (occurrence: JP)
  Receive Date: 20180713
  Receipt Date: 20180925
  Transmission Date: 20181010
  Serious: Yes (Hospitalization, Congenital Anomaly)
  Sender: FDA-Public Use
  Company Number: JP-ASTELLAS-2018JP010012

PATIENT
  Age: 1 Day
  Sex: Female
  Weight: 1 kg

DRUGS (9)
  1. PREDONINE [Suspect]
     Active Substance: PREDNISOLONE
     Indication: EXPOSURE VIA BREAST MILK
     Route: 063
     Dates: start: 20180210
  2. MARZULENE                          /00317302/ [Concomitant]
     Indication: FOETAL EXPOSURE DURING PREGNANCY
     Dosage: 0.5 G, TWICE DAILY
     Route: 064
     Dates: start: 201707, end: 20180209
  3. PROGRAF [Suspect]
     Active Substance: TACROLIMUS\TACROLIMUS ANHYDROUS
     Indication: EXPOSURE VIA BREAST MILK
     Route: 063
     Dates: start: 20180210
  4. HEPARIN CALCIUM [Concomitant]
     Active Substance: HEPARIN CALCIUM
     Indication: FOETAL EXPOSURE DURING PREGNANCY
     Route: 064
     Dates: start: 20170815, end: 20180206
  5. MARZULENE                          /00317302/ [Concomitant]
     Indication: EXPOSURE VIA BREAST MILK
     Dosage: 0.5 G, TWICE DAILY
     Route: 063
     Dates: start: 20180210
  6. ALFAROL [Concomitant]
     Active Substance: ALFACALCIDOL
     Indication: FOETAL EXPOSURE DURING PREGNANCY
     Route: 064
     Dates: start: 201707, end: 20180209
  7. ALFAROL [Concomitant]
     Active Substance: ALFACALCIDOL
     Indication: EXPOSURE VIA BREAST MILK
     Route: 063
     Dates: start: 20180210
  8. PROGRAF [Suspect]
     Active Substance: TACROLIMUS\TACROLIMUS ANHYDROUS
     Indication: FOETAL EXPOSURE DURING PREGNANCY
     Route: 064
     Dates: start: 201707, end: 20180209
  9. PREDONINE [Suspect]
     Active Substance: PREDNISOLONE
     Indication: FOETAL EXPOSURE DURING PREGNANCY
     Route: 064
     Dates: start: 201707, end: 20180209

REACTIONS (2)
  - Low birth weight baby [Not Recovered/Not Resolved]
  - Exposure via breast milk [Unknown]

NARRATIVE: CASE EVENT DATE: 20180210
